FAERS Safety Report 7965722-4 (Version None)
Quarter: 2011Q4

REPORT INFORMATION
  Report Type: 
  Country: None (occurrence: None)
  Receive Date: 20111208
  Receipt Date: 20111205
  Transmission Date: 20120403
  Serious: Yes (Hospitalization, Other)
  Sender: FDA-Public Use
  Company Number: CU-ROXANE LABORATORIES, INC.-2011-RO-01737RO

PATIENT
  Age: 18 Year
  Sex: Male

DRUGS (2)
  1. FLECAINIDE ACETATE [Suspect]
     Route: 048
  2. FLECAINIDE ACETATE [Suspect]
     Indication: TACHYCARDIA

REACTIONS (3)
  - GRAND MAL CONVULSION [None]
  - ACCIDENTAL OVERDOSE [None]
  - VENTRICULAR TACHYCARDIA [None]
